FAERS Safety Report 25952018 (Version 1)
Quarter: 2025Q4

REPORT INFORMATION
  Report Type: Spontaneous
  Country: US (occurrence: None)
  Receive Date: 20251022
  Receipt Date: 20251022
  Transmission Date: 20260118
  Serious: Yes (Hospitalization)
  Sender: FDA-CTU
  Company Number: None

PATIENT
  Sex: Male

DRUGS (10)
  1. LENALIDOMIDE [Suspect]
     Active Substance: LENALIDOMIDE
     Indication: Plasma cell myeloma
     Dosage: FREQ: TAKE 1 CAPSULE (10 MG TOTAL) BY MOUTH DAILY ON DAYS 1-21 FOLLOWED BY 7 DAYS OFF (28-DAY ?CYCLE)?
     Route: 048
     Dates: start: 20250822
  2. ACYCLOVIR  TAB 400MG [Concomitant]
  3. ALLERGY ULTR TAB 25MG [Concomitant]
  4. ASPIRIN  CHW 81MG [Concomitant]
  5. CALCIUM 500 TAB /VIT D [Concomitant]
  6. DARZALEX  SOL  100MG/5M DEXAMETHASON TAB 6-DAY [Concomitant]
  7. LORAZEPAM  TAB 0.5MG [Concomitant]
  8. METOPROL SUC TAB 25MG ER [Concomitant]
  9. ONDANSETRON TAB 8MG ODT [Concomitant]
  10. TELMISARTAN TAB 40MG [Concomitant]

REACTIONS (4)
  - Disease complication [None]
  - Infection [None]
  - Therapy interrupted [None]
  - Plasma cell myeloma [None]
